FAERS Safety Report 17188029 (Version 1)
Quarter: 2019Q4

REPORT INFORMATION
  Report Type: Spontaneous
  Country: GB (occurrence: GB)
  Receive Date: 20191221
  Receipt Date: 20191221
  Transmission Date: 20200122
  Serious: Yes (Life-Threatening)
  Sender: FDA-Public Use
  Company Number: GB-009507513-1912GBR007319

PATIENT
  Age: 81 Year
  Sex: Female

DRUGS (2)
  1. PEMBROLIZUMAB. [Suspect]
     Active Substance: PEMBROLIZUMAB
     Indication: METASTATIC MALIGNANT MELANOMA
     Dosage: 140 MILLIGRAM, Q3W
     Route: 042
     Dates: start: 201608
  2. PEMBROLIZUMAB. [Suspect]
     Active Substance: PEMBROLIZUMAB
     Dosage: 150 MILLIGRAM, Q3W
     Route: 042
     Dates: start: 201805, end: 201808

REACTIONS (15)
  - Decreased appetite [Unknown]
  - Jaundice [Unknown]
  - Autoimmune haemolytic anaemia [Recovered/Resolved]
  - Haemoglobin decreased [Unknown]
  - Abdominal pain upper [Unknown]
  - Cholangiolitis [Unknown]
  - Haemolysis [Unknown]
  - Lethargy [Unknown]
  - Hyperbilirubinaemia [Unknown]
  - Biliary tract disorder [Unknown]
  - Cholecystitis [Unknown]
  - Red blood cell agglutination [Unknown]
  - Gallbladder enlargement [Unknown]
  - Hypoxia [Unknown]
  - Nausea [Unknown]

NARRATIVE: CASE EVENT DATE: 2018
